FAERS Safety Report 10045855 (Version 1)
Quarter: 2014Q1

REPORT INFORMATION
  Report Type: Spontaneous
  Country: US (occurrence: US)
  Receive Date: 20140329
  Receipt Date: 20140329
  Transmission Date: 20141002
  Serious: Yes (Hospitalization)
  Sender: FDA-Public Use
  Company Number: US-ROCHE-1367757

PATIENT
  Sex: Male

DRUGS (2)
  1. XELODA [Suspect]
     Indication: PRODUCT USED FOR UNKNOWN INDICATION
     Route: 065
  2. NEXAVAR [Concomitant]
     Route: 065

REACTIONS (6)
  - Faecaloma [Unknown]
  - Thrombosis [Unknown]
  - Anaemia [Unknown]
  - Joint swelling [Unknown]
  - Local swelling [Unknown]
  - Palmar-plantar erythrodysaesthesia syndrome [Unknown]
